FAERS Safety Report 13061958 (Version 1)
Quarter: 2016Q4

REPORT INFORMATION
  Report Type: Report from Study
  Country: US (occurrence: US)
  Receive Date: 20161226
  Receipt Date: 20161226
  Transmission Date: 20170207
  Serious: No
  Sender: FDA-Public Use
  Company Number: US-AMGEN-USASL2016179049

PATIENT
  Age: 40 Year
  Sex: Male

DRUGS (1)
  1. ENBREL [Suspect]
     Active Substance: ETANERCEPT
     Indication: PSORIATIC ARTHROPATHY
     Dosage: UNK, UNK, QWK
     Route: 065

REACTIONS (7)
  - Contusion [Unknown]
  - Flushing [Unknown]
  - Injection site discomfort [Unknown]
  - Dizziness [Unknown]
  - Pain [Unknown]
  - Irritability [Unknown]
  - Chills [Unknown]

NARRATIVE: CASE EVENT DATE: 20161215
